FAERS Safety Report 7823085-9 (Version None)
Quarter: 2011Q4

REPORT INFORMATION
  Report Type: 
  Country: None (occurrence: None)
  Receive Date: 20111019
  Receipt Date: 20111006
  Transmission Date: 20120403
  Serious: Yes (Life-Threatening, Hospitalization)
  Sender: FDA-Public Use
  Company Number: CA-ALVOGEN-2011AL000080

PATIENT
  Age: 84 Year
  Sex: Female
  Weight: 55.79 kg

DRUGS (3)
  1. MACROBID [Suspect]
     Indication: PRODUCT USED FOR UNKNOWN INDICATION
     Route: 048
  2. HYDROCHLOROTHIAZIDE [Concomitant]
     Indication: PRODUCT USED FOR UNKNOWN INDICATION
  3. HYTRIN [Concomitant]
     Indication: PRODUCT USED FOR UNKNOWN INDICATION

REACTIONS (10)
  - FATIGUE [None]
  - OXYGEN SATURATION DECREASED [None]
  - TREMOR [None]
  - ARTHRALGIA [None]
  - CHEST DISCOMFORT [None]
  - DYSPNOEA [None]
  - ASTHENIA [None]
  - OCULAR HYPERAEMIA [None]
  - EAR PAIN [None]
  - CHILLS [None]
